FAERS Safety Report 12322517 (Version 1)
Quarter: 2016Q2

REPORT INFORMATION
  Report Type: Spontaneous
  Country: US (occurrence: US)
  Receive Date: 20160502
  Receipt Date: 20160502
  Transmission Date: 20160815
  Serious: No
  Sender: FDA-Public Use
  Company Number: PHEH2016US010189

PATIENT
  Age: 26 Year
  Sex: Female

DRUGS (1)
  1. EXELON PATCH [Suspect]
     Active Substance: RIVASTIGMINE
     Indication: EPILEPSY
     Dosage: UNK, FOR FOUR YEARS
     Route: 062

REACTIONS (2)
  - Product use issue [Unknown]
  - Confusional state [Unknown]
